FAERS Safety Report 21203805 (Version 2)
Quarter: 2022Q3

REPORT INFORMATION
  Report Type: Spontaneous
  Country: BG (occurrence: None)
  Receive Date: 20220811
  Receipt Date: 20220908
  Transmission Date: 20221027
  Serious: Yes (Hospitalization, Other)
  Sender: FDA-Public Use
  Company Number: 2022A270818

PATIENT
  Age: 17106 Day
  Sex: Female

DRUGS (1)
  1. LYNPARZA [Suspect]
     Active Substance: OLAPARIB
     Indication: Ovarian cancer
     Route: 048
     Dates: start: 202111, end: 202205

REACTIONS (6)
  - Hepatic enzyme increased [Unknown]
  - Subacute hepatic failure [Unknown]
  - Ascites [Unknown]
  - Metastases to peritoneum [Unknown]
  - Carbohydrate antigen 125 increased [Unknown]
  - Diarrhoea [Recovered/Resolved]

NARRATIVE: CASE EVENT DATE: 20220501
